FAERS Safety Report 5894287-6 (Version None)
Quarter: 2008Q3

REPORT INFORMATION
  Report Type: 
  Country: None (occurrence: None)
  Receive Date: 20080923
  Receipt Date: 20080411
  Transmission Date: 20090109
  Serious: No
  Sender: FDA-Public Use
  Company Number: US-ASTRAZENECA-2008UW07430

PATIENT
  Age: 48 Year
  Sex: Female
  Weight: 68 kg

DRUGS (3)
  1. SEROQUEL [Suspect]
     Indication: MENTAL DISORDER
     Route: 048
     Dates: start: 20080410
  2. TRAZODONE HCL [Concomitant]
  3. XANAX [Concomitant]

REACTIONS (4)
  - ENERGY INCREASED [None]
  - HEADACHE [None]
  - INSOMNIA [None]
  - PAIN [None]
